FAERS Safety Report 11279363 (Version 2)
Quarter: 2015Q3

REPORT INFORMATION
  Report Type: Spontaneous
  Country: US (occurrence: US)
  Receive Date: 20150717
  Receipt Date: 20150828
  Transmission Date: 20151125
  Serious: Yes (Other)
  Sender: FDA-Public Use
  Company Number: US-PFIZER INC-2015235973

PATIENT
  Age: 48 Year
  Sex: Female
  Weight: 83.9 kg

DRUGS (1)
  1. ESTRING [Suspect]
     Active Substance: ESTRADIOL
     Indication: VULVOVAGINAL DRYNESS
     Dosage: EVERY 3 MONTHS (QUARTERLY)
     Dates: start: 20150601, end: 20150714

REACTIONS (2)
  - Vulvovaginal discomfort [Unknown]
  - Vaginal haemorrhage [Recovered/Resolved]

NARRATIVE: CASE EVENT DATE: 20150701
